FAERS Safety Report 9267894 (Version 1)
Quarter: 2013Q2

REPORT INFORMATION
  Report Type: Spontaneous
  Country: US (occurrence: US)
  Receive Date: 20130502
  Receipt Date: 20130502
  Transmission Date: 20140414
  Serious: Yes (Hospitalization)
  Sender: FDA-Public Use
  Company Number: US-MYLANLABS-2013S1008914

PATIENT
  Age: 43 Year
  Sex: Female

DRUGS (2)
  1. VITAMIN D [Suspect]
     Dosage: 8000 IU PER DAY
     Route: 065
  2. LITHIUM [Interacting]
     Indication: BIPOLAR DISORDER
     Route: 065

REACTIONS (3)
  - Hypervitaminosis [Unknown]
  - Hypercalcaemia [Recovered/Resolved]
  - Drug interaction [Recovered/Resolved]
